FAERS Safety Report 25757954 (Version 1)
Quarter: 2025Q3

REPORT INFORMATION
  Report Type: Spontaneous
  Country: US (occurrence: US)
  Receive Date: 20250903
  Receipt Date: 20250903
  Transmission Date: 20251020
  Serious: No
  Sender: Hugel Aesthetics
  Company Number: US-Hugel Aesthetics-2183784

PATIENT
  Age: 42 Year
  Sex: Female

DRUGS (2)
  1. LETYBO [Suspect]
     Active Substance: LETIBOTULINUMTOXINA-WLBG
     Indication: Skin wrinkling
     Dates: start: 20250708, end: 20250708
  2. LETYBO [Suspect]
     Active Substance: LETIBOTULINUMTOXINA-WLBG
     Indication: Product use in unapproved indication

REACTIONS (1)
  - Therapy non-responder [Unknown]
